FAERS Safety Report 17290232 (Version 1)
Quarter: 2020Q1

REPORT INFORMATION
  Report Type: Spontaneous
  Country: US (occurrence: US)
  Receive Date: 20200120
  Receipt Date: 20200120
  Transmission Date: 20200409
  Serious: No
  Sender: FDA-Public Use
  Company Number: NVSC2019US048113

PATIENT
  Sex: Female
  Weight: 47.17 kg

DRUGS (1)
  1. RECLAST [Suspect]
     Active Substance: ZOLEDRONIC ACID
     Indication: OSTEOPOROSIS
     Dosage: 5 MG, ONCE/SINGLE
     Route: 041
     Dates: start: 20171115, end: 20171115

REACTIONS (9)
  - Sleep disorder [Unknown]
  - Arthralgia [Unknown]
  - Pain [Unknown]
  - Injury [Unknown]
  - Fatigue [Unknown]
  - Anhedonia [Unknown]
  - Emotional distress [Unknown]
  - Vestibular disorder [Unknown]
  - Myalgia [Unknown]
